FAERS Safety Report 24679331 (Version 1)
Quarter: 2024Q4

REPORT INFORMATION
  Report Type: Spontaneous
  Country: CA (occurrence: CA)
  Receive Date: 20241129
  Receipt Date: 20241129
  Transmission Date: 20250115
  Serious: No
  Sender: BLUEPRINT MEDICINES
  Company Number: CA-Blueprint Medicines Corporation-SO-CA-2024-002467

PATIENT
  Age: 44 Year
  Sex: Female

DRUGS (2)
  1. AVAPRITINIB [Suspect]
     Active Substance: AVAPRITINIB
     Indication: Smouldering systemic mastocytosis
     Route: 048
  2. AVAPRITINIB [Suspect]
     Active Substance: AVAPRITINIB
     Indication: Anaphylactic reaction

REACTIONS (1)
  - Off label use [Unknown]
